FAERS Safety Report 23038503 (Version 2)
Quarter: 2024Q1

REPORT INFORMATION
  Report Type: Report from Study
  Country: GB (occurrence: GB)
  Receive Date: 20231006
  Receipt Date: 20240327
  Transmission Date: 20240410
  Serious: Yes (Hospitalization)
  Sender: FDA-Public Use
  Company Number: GB-TAKEDA-2023TUS054930

PATIENT
  Sex: Male

DRUGS (1)
  1. VEDOLIZUMAB [Suspect]
     Active Substance: VEDOLIZUMAB
     Indication: Crohn^s disease
     Dosage: 108 MILLIGRAM, Q2WEEKS
     Route: 058
     Dates: start: 20230404

REACTIONS (5)
  - Hospitalisation [Unknown]
  - Confusional state [Unknown]
  - Drug effect less than expected [Unknown]
  - Gait disturbance [Unknown]
  - Incorrect dose administered [Unknown]
